FAERS Safety Report 9470440 (Version 1)
Quarter: 2013Q3

REPORT INFORMATION
  Report Type: Spontaneous
  Country: IT (occurrence: None)
  Receive Date: 20130815
  Receipt Date: 20130815
  Transmission Date: 20140515
  Serious: Yes (Hospitalization)
  Sender: FDA-Public Use
  Company Number: INDO20130004

PATIENT
  Age: 79 Year
  Sex: Male

DRUGS (2)
  1. INDOMETHACIN [Suspect]
     Indication: BACK PAIN
     Route: 048
     Dates: start: 2010, end: 2010
  2. LISINOPRIL/HYDROCHLOROTHIAZIDE(HYDROCHLOROTHIAZIDE, LISINOPRIL) (TABLETS) (HYDROCHLOROTHIAZIDE, LISINOPRIL) [Concomitant]

REACTIONS (5)
  - Venous thrombosis [None]
  - Abdominal pain [None]
  - Dyspepsia [None]
  - Nausea [None]
  - Vomiting [None]
